FAERS Safety Report 6666371-0 (Version None)
Quarter: 2010Q1

REPORT INFORMATION
  Report Type: 
  Country: None (occurrence: None)
  Receive Date: 20100331
  Receipt Date: 20100322
  Transmission Date: 20100710
  Serious: Yes (Hospitalization, Disabling)
  Sender: FDA-Public Use
  Company Number: TPA2010A01298

PATIENT
  Age: 58 Year
  Sex: Female

DRUGS (2)
  1. ACTOS [Suspect]
     Indication: TYPE 2 DIABETES MELLITUS
     Dosage: 45 MG, 1 IN 1 D, PER ORAL
     Route: 048
  2. PREDNISONE TAB [Concomitant]

REACTIONS (6)
  - GALLBLADDER DISORDER [None]
  - INCISIONAL HERNIA GANGRENOUS [None]
  - INTESTINAL ISCHAEMIA [None]
  - MYOCARDIAL INFARCTION [None]
  - PAIN [None]
  - TEMPERATURE INTOLERANCE [None]
